FAERS Safety Report 24601667 (Version 1)
Quarter: 2024Q4

REPORT INFORMATION
  Report Type: Spontaneous
  Country: FR (occurrence: FR)
  Receive Date: 20241111
  Receipt Date: 20241111
  Transmission Date: 20250115
  Serious: Yes (Other)
  Sender: JOHNSON AND JOHNSON
  Company Number: None

PATIENT
  Age: 54 Year
  Sex: Female
  Weight: 57.6 kg

DRUGS (4)
  1. BALVERSA [Suspect]
     Active Substance: ERDAFITINIB
     Indication: Transitional cell carcinoma
     Route: 048
     Dates: start: 20220226, end: 20220424
  2. BALVERSA [Suspect]
     Active Substance: ERDAFITINIB
     Route: 048
     Dates: start: 20220503, end: 20240624
  3. BALVERSA [Suspect]
     Active Substance: ERDAFITINIB
     Dosage: 6 MG/DAY FOR 5 DAYS, 5 DAY BREAK.
     Route: 048
     Dates: start: 20240625, end: 20240922
  4. BALVERSA [Suspect]
     Active Substance: ERDAFITINIB
     Dosage: 6 MG/DAY FOR 5 DAYS, 5 DAY BREAK.
     Route: 048
     Dates: start: 20240923

REACTIONS (2)
  - Visual acuity reduced [Recovered/Resolved with Sequelae]
  - Cataract [Recovered/Resolved with Sequelae]

NARRATIVE: CASE EVENT DATE: 20240918
